FAERS Safety Report 7360638-9 (Version None)
Quarter: 2011Q1

REPORT INFORMATION
  Report Type: 
  Country: None (occurrence: None)
  Receive Date: 20110318
  Receipt Date: 20100928
  Transmission Date: 20110831
  Serious: Yes (Other)
  Sender: FDA-Public Use
  Company Number: US-BAYER-201033583NA

PATIENT
  Sex: Female
  Weight: 83.9 kg

DRUGS (7)
  1. ACETAMINOPHEN [Concomitant]
  2. NEXIUM [Concomitant]
  3. LORTAB [Concomitant]
     Indication: PAIN MANAGEMENT
  4. UNCODEABLE ^UNCLASSIFIABLE^ [Concomitant]
  5. YAZ [Suspect]
     Indication: ACNE
     Dosage: UNK
     Dates: start: 20060101, end: 20080101
  6. OCELLA [Suspect]
     Indication: ACNE
  7. YASMIN [Suspect]
     Indication: ACNE

REACTIONS (4)
  - CHOLECYSTITIS CHRONIC [None]
  - GALLBLADDER DISORDER [None]
  - CHOLELITHIASIS [None]
  - ABDOMINAL PAIN UPPER [None]
